FAERS Safety Report 7115476-9 (Version None)
Quarter: 2010Q4

REPORT INFORMATION
  Report Type: 
  Country: None (occurrence: None)
  Receive Date: 20101122
  Receipt Date: 20100323
  Transmission Date: 20110411
  Serious: No
  Sender: FDA-Public Use
  Company Number: US-BAYER-201012306NA

PATIENT
  Age: 52 Year
  Sex: Female

DRUGS (2)
  1. CLIMARA PRO [Suspect]
     Indication: PRODUCT USED FOR UNKNOWN INDICATION
     Dosage: 0.045/0.015MG
     Route: 062
  2. LIMICTAL-GENERIC [Concomitant]

REACTIONS (5)
  - APPLICATION SITE ERYTHEMA [None]
  - APPLICATION SITE EXFOLIATION [None]
  - APPLICATION SITE PAIN [None]
  - APPLICATION SITE PRURITUS [None]
  - VAGINAL HAEMORRHAGE [None]
